FAERS Safety Report 5631543-0 (Version None)
Quarter: 2008Q1

REPORT INFORMATION
  Report Type: 
  Country: None (occurrence: None)
  Receive Date: 20080219
  Receipt Date: 20080213
  Transmission Date: 20080703
  Serious: No
  Sender: FDA-Public Use
  Company Number: GB-ALLERGAN-0800802US

PATIENT
  Sex: Female

DRUGS (1)
  1. AZELAIC ACID [Suspect]
     Indication: ROSACEA
     Dosage: UNK, UNKNOWN
     Route: 061
     Dates: start: 20070925, end: 20071004

REACTIONS (1)
  - HYPERSENSITIVITY [None]
